FAERS Safety Report 7128667-8 (Version None)
Quarter: 2010Q4

REPORT INFORMATION
  Report Type: 
  Country: None (occurrence: None)
  Receive Date: 20101112
  Receipt Date: 20101103
  Transmission Date: 20110411
  Serious: Yes (Hospitalization)
  Sender: FDA-Public Use
  Company Number: 2010US003983

PATIENT
  Age: 64 Year
  Sex: Female
  Weight: 127 kg

DRUGS (1)
  1. PROGRAF [Suspect]
     Indication: LIVER TRANSPLANT
     Dosage: 2 MG, BID, ORAL
     Route: 048
     Dates: start: 20090714

REACTIONS (4)
  - DEHYDRATION [None]
  - NAUSEA [None]
  - VASCULAR SHUNT [None]
  - VOMITING [None]
